FAERS Safety Report 19483621 (Version 1)
Quarter: 2021Q3

REPORT INFORMATION
  Report Type: Spontaneous
  Country: US (occurrence: US)
  Receive Date: 20210701
  Receipt Date: 20210701
  Transmission Date: 20211014
  Serious: No
  Sender: FDA-Public Use
  Company Number: US-ROCHE-2712258

PATIENT
  Sex: Female
  Weight: 58.97 kg

DRUGS (5)
  1. KLONOPIN [Suspect]
     Active Substance: CLONAZEPAM
     Indication: ANXIETY
     Dosage: THREE TIMES A DAY AS NEEDED
     Route: 048
  2. TOPAMAX [Suspect]
     Active Substance: TOPIRAMATE
     Indication: MIGRAINE
     Dosage: ONE AND ONE HALF TABLET TWICE PER DAILY
     Route: 048
  3. TOPAMAX [Suspect]
     Active Substance: TOPIRAMATE
     Indication: FIBROMYALGIA
  4. TOPAMAX [Suspect]
     Active Substance: TOPIRAMATE
     Indication: NEURALGIA
  5. LYRICA [Suspect]
     Active Substance: PREGABALIN
     Indication: FIBROMYALGIA
     Route: 048

REACTIONS (1)
  - Dizziness [Recovering/Resolving]
